FAERS Safety Report 9320315 (Version 1)
Quarter: 2013Q2

REPORT INFORMATION
  Report Type: Spontaneous
  Country: DE (occurrence: DE)
  Receive Date: 20130530
  Receipt Date: 20130530
  Transmission Date: 20140414
  Serious: Yes (Hospitalization)
  Sender: FDA-Public Use
  Company Number: DE-B.I. PHARMACEUTICALS,INC./RIDGEFIELD-2013-DE-01427DE

PATIENT
  Sex: Female

DRUGS (6)
  1. PRADAXA [Suspect]
     Indication: ATRIAL FIBRILLATION
     Dosage: 220 MG
     Dates: start: 20121015, end: 20130417
  2. LERCANIDIPIN [Concomitant]
  3. METOPROLOL COMP [Concomitant]
  4. CANDESARTAN [Concomitant]
  5. ATORVASTATIN [Concomitant]
  6. EUTHYROX [Concomitant]

REACTIONS (2)
  - Submandibular mass [Not Recovered/Not Resolved]
  - Rash [Unknown]
